FAERS Safety Report 7935177-4 (Version None)
Quarter: 2011Q4

REPORT INFORMATION
  Report Type: 
  Country: None (occurrence: None)
  Receive Date: 20111122
  Receipt Date: 20111115
  Transmission Date: 20120403
  Serious: Yes (Hospitalization)
  Sender: FDA-Public Use
  Company Number: US-MPIJNJ-2011-05731

PATIENT
  Age: 65 Year
  Sex: Female
  Weight: 69.31 kg

DRUGS (2)
  1. VELCADE [Suspect]
     Indication: OVARIAN EPITHELIAL CANCER
     Dosage: 0.5 MG/M2, CYCLIC
     Route: 033
     Dates: start: 20110519, end: 20111013
  2. CARBOPLATIN [Suspect]
     Indication: OVARIAN EPITHELIAL CANCER
     Dosage: UNK
     Route: 033
     Dates: start: 20110519, end: 20111013

REACTIONS (5)
  - DIZZINESS [None]
  - HYPOPHOSPHATAEMIA [None]
  - APHASIA [None]
  - HYPERGLYCAEMIA [None]
  - CONFUSIONAL STATE [None]
